FAERS Safety Report 15541333 (Version 1)
Quarter: 2018Q4

REPORT INFORMATION
  Report Type: Spontaneous
  Country: US (occurrence: US)
  Receive Date: 20181023
  Receipt Date: 20181023
  Transmission Date: 20190205
  Serious: No
  Sender: FDA-Public Use
  Company Number: US-MYLANLABS-2018M1075507

PATIENT
  Sex: Female
  Weight: 56 kg

DRUGS (1)
  1. ESTRADIOL TRANSDERMAL SYSTEM [Suspect]
     Active Substance: ESTRADIOL
     Indication: HORMONE REPLACEMENT THERAPY
     Dosage: UNK UNK, QW
     Route: 062
     Dates: start: 2018

REACTIONS (2)
  - Drug effect decreased [Recovering/Resolving]
  - Product adhesion issue [Recovering/Resolving]

NARRATIVE: CASE EVENT DATE: 2018
